FAERS Safety Report 8766922 (Version 2)
Quarter: 2013Q3

REPORT INFORMATION
  Report Type: Spontaneous
  Country: DE (occurrence: DE)
  Receive Date: 20120904
  Receipt Date: 20130805
  Transmission Date: 20140515
  Serious: Yes (Hospitalization)
  Sender: FDA-Public Use
  Company Number: DE-PFIZER INC-2012210691

PATIENT
  Age: 23 Year
  Sex: Male
  Weight: 70 kg

DRUGS (1)
  1. LYRICA [Suspect]
     Dosage: 3 - 4 TABLETS
     Route: 048

REACTIONS (3)
  - Drug abuse [Unknown]
  - Drug dependence [Unknown]
  - Withdrawal syndrome [Unknown]
